FAERS Safety Report 11939758 (Version 1)
Quarter: 2016Q1

REPORT INFORMATION
  Report Type: Spontaneous
  Country: KR (occurrence: KR)
  Receive Date: 20160122
  Receipt Date: 20160122
  Transmission Date: 20160526
  Serious: Yes (Death, Hospitalization)
  Sender: FDA-Public Use
  Company Number: KR-JNJFOC-20160117004

PATIENT
  Age: 77 Year
  Sex: Female

DRUGS (6)
  1. ASPIRIN PROTECT [Concomitant]
     Active Substance: ASPIRIN
     Route: 065
  2. INDENOL [Concomitant]
     Active Substance: PROPRANOLOL HYDROCHLORIDE
     Route: 065
  3. XARELTO [Suspect]
     Active Substance: RIVAROXABAN
     Indication: EMBOLISM VENOUS
     Route: 048
  4. XARELTO [Suspect]
     Active Substance: RIVAROXABAN
     Indication: THROMBOSIS
     Route: 048
  5. DEPAKOTE [Concomitant]
     Active Substance: DIVALPROEX SODIUM
     Route: 065
  6. BONVIVA [Concomitant]
     Active Substance: IBANDRONATE SODIUM
     Route: 065

REACTIONS (6)
  - Death [Fatal]
  - Dyspnoea [Unknown]
  - Diarrhoea [Unknown]
  - Dizziness [Unknown]
  - Back pain [Unknown]
  - Confusional state [Unknown]
